FAERS Safety Report 4319506-9 (Version None)
Quarter: 2004Q1

REPORT INFORMATION
  Report Type: 
  Country: None (occurrence: None)
  Receive Date: 20040318
  Receipt Date: 20040318
  Transmission Date: 20041129
  Serious: No
  Sender: FDA-Public Use
  Company Number: None

PATIENT
  Age: 73 Year
  Sex: Female
  Weight: 82.1011 kg

DRUGS (6)
  1. SKELAXIN [Suspect]
     Indication: INTERVERTEBRAL DISC DISORDER
     Dosage: BID
     Dates: start: 20040114, end: 20040220
  2. FELDENE [Concomitant]
  3. NORVASC [Concomitant]
  4. PRILOSEC [Concomitant]
  5. OGEN [Concomitant]
  6. CELEXA [Concomitant]

REACTIONS (1)
  - AGRANULOCYTOSIS [None]
